FAERS Safety Report 4313433-9 (Version None)
Quarter: 2004Q1

REPORT INFORMATION
  Report Type: 
  Country: None (occurrence: None)
  Receive Date: 20040304
  Receipt Date: 20040224
  Transmission Date: 20041129
  Serious: Yes (Death)
  Sender: FDA-Public Use
  Company Number: US-JNJFOC-20040205776

PATIENT
  Age: 60 Year
  Sex: Male

DRUGS (11)
  1. DURAGESIC [Suspect]
     Indication: PAIN
     Dosage: 200 UG/HR, 1 IN 72 HOUR, TRANSDERMAL
     Route: 062
     Dates: end: 20040103
  2. PEPCID [Concomitant]
  3. DOCUSATE NA (DOCUSATE) [Concomitant]
  4. ROBAXIN [Concomitant]
  5. MORPHINE [Concomitant]
  6. NEURONTIN [Concomitant]
  7. AMBIEN [Concomitant]
  8. MILK OF MAGNESIA (MAGNESIUM HYDROXIDE) [Concomitant]
  9. MS CONTIN [Concomitant]
  10. PHENERGAN [Concomitant]
  11. DARVOCET (PROPACET) [Concomitant]

REACTIONS (2)
  - MALIGNANT NEOPLASM PROGRESSION [None]
  - MULTIPLE MYELOMA [None]
